FAERS Safety Report 25039803 (Version 1)
Quarter: 2025Q1

REPORT INFORMATION
  Report Type: Spontaneous
  Country: GB (occurrence: GB)
  Receive Date: 20250305
  Receipt Date: 20250305
  Transmission Date: 20250409
  Serious: Yes (Other)
  Sender: AUROBINDO
  Company Number: GB-BRISTOL-MYERS SQUIBB COMPANY-2025-023150

PATIENT
  Age: 90 Year
  Weight: 45 kg

DRUGS (2)
  1. APIXABAN [Suspect]
     Active Substance: APIXABAN
     Indication: Thrombosis
     Dosage: 5 MILLIGRAM, ONCE A DAY
     Route: 048
     Dates: start: 20241212
  2. APIXABAN [Suspect]
     Active Substance: APIXABAN
     Indication: Pulmonary embolism

REACTIONS (2)
  - Hip fracture [Unknown]
  - Conduction disorder [Unknown]

NARRATIVE: CASE EVENT DATE: 20241214
